FAERS Safety Report 10413375 (Version 1)
Quarter: 2014Q3

REPORT INFORMATION
  Report Type: Spontaneous
  Country: US (occurrence: US)
  Receive Date: 20140827
  Receipt Date: 20140827
  Transmission Date: 20150326
  Serious: Yes (Hospitalization)
  Sender: FDA-Public Use
  Company Number: US-GLAXOSMITHKLINE-A1085706A

PATIENT
  Sex: Female

DRUGS (6)
  1. VITAMIN D3 [Concomitant]
     Active Substance: CHOLECALCIFEROL
  2. ADVAIR HFA [Suspect]
     Active Substance: FLUTICASONE PROPIONATE\SALMETEROL XINAFOATE
     Indication: PRODUCT USED FOR UNKNOWN INDICATION
     Dosage: 2PUFF TWICE PER DAY
     Route: 065
     Dates: start: 201406
  3. LOSARTAN [Concomitant]
     Active Substance: LOSARTAN
  4. ATORVASTATIN [Concomitant]
     Active Substance: ATORVASTATIN
  5. PROBIOTICS [Concomitant]
     Active Substance: PROBIOTICS NOS
  6. ADVAIR HFA [Suspect]
     Active Substance: FLUTICASONE PROPIONATE\SALMETEROL XINAFOATE
     Indication: LUNG DISORDER
     Dosage: 2PUFF TWICE PER DAY
     Route: 065
     Dates: start: 1994

REACTIONS (10)
  - Dry mouth [Unknown]
  - Wheezing [Unknown]
  - Pneumonia bacterial [Unknown]
  - Cough [Unknown]
  - Pulmonary mass [Unknown]
  - Pyrexia [Unknown]
  - Lung abscess [Unknown]
  - Oral mucosal blistering [Unknown]
  - Dyspnoea [Unknown]
  - Treatment noncompliance [Unknown]
